FAERS Safety Report 6085497-6 (Version None)
Quarter: 2009Q1

REPORT INFORMATION
  Report Type: 
  Country: None (occurrence: None)
  Receive Date: 20090217
  Receipt Date: 20080407
  Transmission Date: 20090719
  Serious: Yes (Other)
  Sender: FDA-Public Use
  Company Number: US-WYE-H03544308

PATIENT
  Age: 6 Year
  Sex: Female
  Weight: 19.52 kg

DRUGS (3)
  1. ALAVERT [Suspect]
     Indication: NASAL CONGESTION
     Dosage: 1 TABLET 1X PER 1 DAY, ORAL
     Route: 048
     Dates: start: 20080406, end: 20080406
  2. ALAVERT [Suspect]
     Indication: POSTNASAL DRIP
     Dosage: 1 TABLET 1X PER 1 DAY, ORAL
     Route: 048
     Dates: start: 20080406, end: 20080406
  3. ALAVERT [Suspect]
     Indication: RHINORRHOEA
     Dosage: 1 TABLET 1X PER 1 DAY, ORAL
     Route: 048
     Dates: start: 20080406, end: 20080406

REACTIONS (1)
  - PSYCHOMOTOR HYPERACTIVITY [None]
